FAERS Safety Report 12953764 (Version 3)
Quarter: 2017Q1

REPORT INFORMATION
  Report Type: Spontaneous
  Country: NL (occurrence: NL)
  Receive Date: 20161117
  Receipt Date: 20170125
  Transmission Date: 20170428
  Serious: Yes (Life-Threatening, Hospitalization, Other)
  Sender: FDA-Public Use
  Company Number: NL-AMGEN-NLDSP2016161643

PATIENT
  Sex: Female
  Weight: 102 kg

DRUGS (7)
  1. ENBREL [Suspect]
     Active Substance: ETANERCEPT
     Indication: RHEUMATOID ARTHRITIS
     Dosage: 1X/WEEK
     Route: 058
     Dates: start: 2007, end: 201610
  2. PREDNISON [Concomitant]
     Active Substance: PREDNISONE
     Dosage: 10 MG, UNK
  3. OMEPRAZOL [Concomitant]
     Active Substance: OMEPRAZOLE
     Dosage: 40 MG, 1X/DAY
  4. MELOXICAM. [Concomitant]
     Active Substance: MELOXICAM
     Indication: PROPHYLAXIS
     Dosage: 15 MG, 1X/DAY
  5. MELOXICAM. [Concomitant]
     Active Substance: MELOXICAM
     Indication: RHEUMATIC DISORDER
     Dosage: 15 MG, 1X/DAY
  6. PREDNISON [Concomitant]
     Active Substance: PREDNISONE
     Dosage: 20 MG, 1X/DAY
     Dates: end: 20161107
  7. PREDNISON [Concomitant]
     Active Substance: PREDNISONE
     Dosage: 5 MG, 1X/DAY
     Dates: start: 20161107

REACTIONS (11)
  - Infection susceptibility increased [Not Recovered/Not Resolved]
  - Disease recurrence [Unknown]
  - Erysipelas [Unknown]
  - Infection [Unknown]
  - Urosepsis [Unknown]
  - Bursitis [Unknown]
  - Subcutaneous abscess [Recovered/Resolved]
  - Staphylococcal infection [Unknown]
  - Injection site erythema [Recovered/Resolved]
  - Injection site irritation [Recovered/Resolved]
  - Decreased immune responsiveness [Not Recovered/Not Resolved]

NARRATIVE: CASE EVENT DATE: 20070328
